FAERS Safety Report 8298795-2 (Version None)
Quarter: 2012Q2

REPORT INFORMATION
  Report Type: 
  Country: None (occurrence: None)
  Receive Date: 20120419
  Receipt Date: 20120409
  Transmission Date: 20120825
  Serious: Yes (Other)
  Sender: FDA-Public Use
  Company Number: US-ELI_LILLY_AND_COMPANY-US201204004557

PATIENT

DRUGS (3)
  1. BEVACIZUMAB [Concomitant]
     Indication: BLADDER CANCER
     Dosage: 15 MG/KG
  2. GEMCITABINE HYDROCHLORIDE [Suspect]
     Indication: BLADDER CANCER
     Dosage: 1000 MG/M2, DAY 1 AND 8
     Route: 042
  3. CISPLATIN [Concomitant]
     Indication: BLADDER CANCER
     Dosage: 70 MG/M2
     Route: 042

REACTIONS (1)
  - PULMONARY EMBOLISM [None]
